FAERS Safety Report 21216081 (Version 1)
Quarter: 2022Q3

REPORT INFORMATION
  Report Type: Spontaneous
  Country: CN (occurrence: None)
  Receive Date: 20220816
  Receipt Date: 20220816
  Transmission Date: 20221027
  Serious: Yes (Other)
  Sender: FDA-Public Use
  Company Number: CN-ROCHE-3156194

PATIENT
  Age: 56 Year
  Sex: Male

DRUGS (1)
  1. GAZYVA [Suspect]
     Active Substance: OBINUTUZUMAB
     Indication: Nodal marginal zone B-cell lymphoma
     Route: 042

REACTIONS (2)
  - Cerebral infarction [Unknown]
  - Off label use [Unknown]
